FAERS Safety Report 5195547-7 (Version None)
Quarter: 2006Q4

REPORT INFORMATION
  Report Type: 
  Country: None (occurrence: None)
  Receive Date: 20061222
  Receipt Date: 20061222
  Transmission Date: 20070319
  Serious: Yes (Hospitalization)
  Sender: FDA-Public Use
  Company Number: None

PATIENT
  Age: 82 Year
  Sex: Female
  Weight: 87 kg

DRUGS (1)
  1. HYDROCODONE BITARTRATE + ACETAMINOPHEN [Suspect]
     Indication: BACK PAIN
     Dosage: 5/500MG Q6HPRN PO
     Route: 048
     Dates: start: 20060705

REACTIONS (4)
  - DELUSION [None]
  - FALL [None]
  - HALLUCINATION [None]
  - REFUSAL OF TREATMENT BY RELATIVE [None]
